FAERS Safety Report 6565214-3 (Version None)
Quarter: 2010Q1

REPORT INFORMATION
  Report Type: 
  Country: None (occurrence: None)
  Receive Date: 20100201
  Receipt Date: 20100127
  Transmission Date: 20100710
  Serious: Yes (Hospitalization)
  Sender: FDA-Public Use
  Company Number: B0630081A

PATIENT
  Sex: Male

DRUGS (12)
  1. ARTIST [Suspect]
     Indication: HYPERTENSION
     Dosage: 10MG PER DAY
     Route: 048
     Dates: start: 20050528, end: 20091215
  2. SUNRYTHM [Suspect]
     Indication: SUPRAVENTRICULAR TACHYCARDIA
     Dosage: 50MG TWICE PER DAY
     Route: 048
     Dates: start: 20050528, end: 20091215
  3. DILTIAZEM HYDROCHLORIDE [Suspect]
     Dosage: 100MG PER DAY
     Route: 048
     Dates: start: 20050528, end: 20091215
  4. ITOROL [Concomitant]
  5. RENIVACE [Concomitant]
  6. BLOPRESS [Concomitant]
     Dates: start: 20050528
  7. LASIX [Concomitant]
     Dates: start: 20050528
  8. WARFARIN SODIUM [Concomitant]
     Dates: start: 20050531
  9. CLEANAL [Concomitant]
     Dates: start: 20091207
  10. PURSENNID [Concomitant]
     Dates: start: 20050528
  11. GASTER D [Concomitant]
     Dates: start: 20050528
  12. VOLTAREN [Concomitant]
     Dates: start: 20091215

REACTIONS (3)
  - BRADYCARDIA [None]
  - HEPATIC FUNCTION ABNORMAL [None]
  - RENAL FAILURE [None]
